FAERS Safety Report 23535741 (Version 2)
Quarter: 2024Q1

REPORT INFORMATION
  Report Type: Spontaneous
  Country: FR (occurrence: FR)
  Receive Date: 20240218
  Receipt Date: 20240327
  Transmission Date: 20240409
  Serious: Yes (Other)
  Sender: FDA-Public Use
  Company Number: FR-Vifor (International) Inc.-VIT-2024-01151

PATIENT
  Age: 69 Year
  Sex: Male

DRUGS (5)
  1. TAVNEOS [Suspect]
     Active Substance: AVACOPAN
     Indication: Product used for unknown indication
     Dosage: 60 MILLIGRAM
     Route: 048
     Dates: start: 20231123
  2. PREDNISONE [Concomitant]
     Active Substance: PREDNISONE
     Indication: Anti-neutrophil cytoplasmic antibody positive vasculitis
     Dosage: DAILY DOSE: 20 (UNIT UNKNOWN), P.O.
     Route: 048
  3. BACTRIM [Concomitant]
     Active Substance: SULFAMETHOXAZOLE\TRIMETHOPRIM
     Dosage: DAILY DOSE: 400 (UNIT UNKNOWN), P.O.
     Route: 048
  4. KARDEGIC [Concomitant]
     Active Substance: ASPIRIN DL-LYSINE
     Dosage: DAILY DOSE: 75 (UNIT UNKNOWN)
     Route: 065
  5. ATORVASTATIN [Concomitant]
     Active Substance: ATORVASTATIN
     Dosage: UNK
     Route: 065

REACTIONS (2)
  - Transient ischaemic attack [Recovered/Resolved with Sequelae]
  - Vasculitis [Unknown]

NARRATIVE: CASE EVENT DATE: 20230101
